FAERS Safety Report 16663671 (Version 1)
Quarter: 2019Q3

REPORT INFORMATION
  Report Type: Spontaneous
  Country: JP (occurrence: JP)
  Receive Date: 20190802
  Receipt Date: 20190802
  Transmission Date: 20191004
  Serious: Yes (Hospitalization)
  Sender: FDA-Public Use
  Company Number: JP-GUERBET-JP-20190109

PATIENT
  Age: 44 Year
  Sex: Female

DRUGS (1)
  1. MAGNESCOPE INTRAVENOUS INJECTION 38% SYRINGE 10ML [Suspect]
     Active Substance: GADOTERATE MEGLUMINE
     Indication: ARTHROGRAM
     Route: 014
     Dates: start: 20190719, end: 20190719

REACTIONS (5)
  - Rash papular [Recovered/Resolved]
  - Blood pressure decreased [Recovered/Resolved]
  - Product use issue [Recovered/Resolved]
  - Product use in unapproved indication [Recovered/Resolved]
  - Pruritus [Recovered/Resolved]

NARRATIVE: CASE EVENT DATE: 20190719
